FAERS Safety Report 25039950 (Version 1)
Quarter: 2025Q1

REPORT INFORMATION
  Report Type: Other
  Country: DE (occurrence: DE)
  Receive Date: 20250305
  Receipt Date: 20250305
  Transmission Date: 20250408
  Serious: Yes (Other)
  Sender: VELOXIS PHARMACEUTICALS
  Company Number: DE-CADRBFARM-2025334559

PATIENT
  Age: 50 Year
  Sex: Male

DRUGS (1)
  1. TACROLIMUS [Suspect]
     Active Substance: TACROLIMUS
     Indication: Renal transplant
     Route: 048
     Dates: start: 2009, end: 20250218

REACTIONS (6)
  - Demyelination [Recovered/Resolved]
  - Respiratory failure [Unknown]
  - Coma [Unknown]
  - Areflexia [Unknown]
  - Metabolic acidosis [Unknown]
  - Tachyarrhythmia [Unknown]

NARRATIVE: CASE EVENT DATE: 20250126
